FAERS Safety Report 8537717-3 (Version None)
Quarter: 2012Q3

REPORT INFORMATION
  Report Type: 
  Country: None (occurrence: None)
  Receive Date: 20120725
  Receipt Date: 20120719
  Transmission Date: 20120928
  Serious: Yes (Other)
  Sender: FDA-Public Use
  Company Number: PHEH2012US014219

PATIENT
  Sex: Female
  Weight: 70.295 kg

DRUGS (1)
  1. METOPROLOL SUCCINATE [Suspect]
     Dosage: UNK UKN, UNK

REACTIONS (2)
  - ANEURYSM [None]
  - CEREBROVASCULAR ACCIDENT [None]
